FAERS Safety Report 20431495 (Version 3)
Quarter: 2022Q3

REPORT INFORMATION
  Report Type: Spontaneous
  Country: CH (occurrence: CH)
  Receive Date: 20220204
  Receipt Date: 20220829
  Transmission Date: 20221027
  Serious: Yes (Hospitalization, Other)
  Sender: FDA-Public Use
  Company Number: CH-MLMSERVICE-20220118-3325660-1

PATIENT
  Age: 40 Year
  Sex: Male

DRUGS (4)
  1. DOXORUBICIN HYDROCHLORIDE [Suspect]
     Active Substance: DOXORUBICIN HYDROCHLORIDE
     Indication: Hodgkin^s disease
     Dosage: 600 MG
  2. DACARBAZINE [Concomitant]
     Active Substance: DACARBAZINE
     Indication: Hodgkin^s disease
     Dosage: UNK, CYCLIC
  3. VINBLASTINE [Concomitant]
     Active Substance: VINBLASTINE
     Indication: Hodgkin^s disease
     Dosage: UNK, CYCLIC
  4. BLEOMYCIN [Concomitant]
     Active Substance: BLEOMYCIN SULFATE
     Indication: Hodgkin^s disease
     Dosage: UNK, CYCLIC

REACTIONS (6)
  - Cardiotoxicity [Unknown]
  - Cardiac failure congestive [Unknown]
  - Cardiac septal defect [Unknown]
  - Toxic cardiomyopathy [Unknown]
  - Left ventricular dilatation [Unknown]
  - Congestive cardiomyopathy [Unknown]
